FAERS Safety Report 22016185 (Version 3)
Quarter: 2023Q1

REPORT INFORMATION
  Report Type: Spontaneous
  Country: JP (occurrence: JP)
  Receive Date: 20230221
  Receipt Date: 20230306
  Transmission Date: 20230418
  Serious: Yes (Other)
  Sender: FDA-Public Use
  Company Number: JP-PFIZER INC-PV202300031015

PATIENT
  Age: 67 Year
  Sex: Female

DRUGS (2)
  1. DOXORUBICIN HYDROCHLORIDE [Suspect]
     Active Substance: DOXORUBICIN HYDROCHLORIDE
     Indication: Breast cancer stage II
     Dosage: UNK, CYCLIC, 4 COURSES
     Dates: start: 202007
  2. CYTOXAN [Suspect]
     Active Substance: CYCLOPHOSPHAMIDE
     Indication: Breast cancer stage II
     Dosage: UNK, CYCLIC, 4 COURSES
     Dates: start: 202007

REACTIONS (2)
  - Interstitial lung disease [Recovering/Resolving]
  - Cardiac dysfunction [Unknown]

NARRATIVE: CASE EVENT DATE: 20200901
